FAERS Safety Report 6642061-5 (Version None)
Quarter: 2010Q1

REPORT INFORMATION
  Report Type: 
  Country: None (occurrence: None)
  Receive Date: 20100319
  Receipt Date: 20100309
  Transmission Date: 20100710
  Serious: Yes (Hospitalization, Other)
  Sender: FDA-Public Use
  Company Number: PHEH2010US02638

PATIENT
  Sex: Female

DRUGS (5)
  1. EXJADE [Suspect]
     Dosage: 1500 MG, QD
     Route: 048
  2. FOLIC ACID [Concomitant]
     Dosage: 0.4 MG, TID
     Route: 048
  3. RABEPRAZOLE SODIUM [Concomitant]
     Dosage: 20 MG DAILY
     Route: 048
  4. METOCLOPRAMIDE [Concomitant]
     Indication: NAUSEA
     Dosage: 10 MG, TID
     Route: 048
  5. TAMOXIFEN CITRATE [Concomitant]
     Dosage: 20 MG DAILY
     Route: 048
     Dates: start: 20100202

REACTIONS (11)
  - ALANINE AMINOTRANSFERASE INCREASED [None]
  - AMMONIA INCREASED [None]
  - ASPARTATE AMINOTRANSFERASE INCREASED [None]
  - BLOOD BILIRUBIN INCREASED [None]
  - CONFUSIONAL STATE [None]
  - FATIGUE [None]
  - JAUNDICE [None]
  - LETHARGY [None]
  - LIVER FUNCTION TEST ABNORMAL [None]
  - MENTAL IMPAIRMENT [None]
  - RENAL DISORDER [None]
